FAERS Safety Report 24140016 (Version 1)
Quarter: 2024Q3

REPORT INFORMATION
  Report Type: Spontaneous
  Country: RU (occurrence: RU)
  Receive Date: 20240726
  Receipt Date: 20240726
  Transmission Date: 20241016
  Serious: Yes (Other)
  Sender: DR REDDYS
  Company Number: RU-RZN-LIT/RUS/24/0010607

PATIENT
  Age: 36 Year
  Sex: Male

DRUGS (5)
  1. CLOPIDOGREL [Suspect]
     Active Substance: CLOPIDOGREL BISULFATE
     Indication: Immune-mediated adverse reaction
     Dates: start: 20200225
  2. CLOPIDOGREL [Suspect]
     Active Substance: CLOPIDOGREL BISULFATE
     Indication: Raynaud^s phenomenon
  3. INFLIXIMAB [Concomitant]
     Active Substance: INFLIXIMAB
     Indication: Raynaud^s phenomenon
     Dates: start: 20200225
  4. PREDNISOLONE [Concomitant]
     Active Substance: PREDNISOLONE
     Indication: Raynaud^s phenomenon
     Dates: start: 20200225
  5. TRENTAL [Concomitant]
     Active Substance: PENTOXIFYLLINE
     Indication: Raynaud^s phenomenon
     Dates: start: 20200225

REACTIONS (1)
  - Drug ineffective for unapproved indication [Unknown]
